FAERS Safety Report 6004424-0 (Version None)
Quarter: 2008Q4

REPORT INFORMATION
  Report Type: 
  Country: None (occurrence: None)
  Receive Date: 20081216
  Receipt Date: 20081211
  Transmission Date: 20090506
  Serious: Yes (Hospitalization)
  Sender: FDA-Public Use
  Company Number: US-MERCK-0810USA04289

PATIENT
  Age: 79 Year
  Sex: Female
  Weight: 55 kg

DRUGS (2)
  1. INVANZ [Suspect]
     Indication: ULCER
     Route: 042
     Dates: start: 20080828, end: 20080911
  2. INVANZ [Suspect]
     Indication: OSTEOMYELITIS
     Route: 042
     Dates: start: 20080828, end: 20080911

REACTIONS (5)
  - BALANCE DISORDER [None]
  - FALL [None]
  - HALLUCINATION [None]
  - HIP FRACTURE [None]
  - MENTAL STATUS CHANGES [None]
